FAERS Safety Report 4773356-8 (Version None)
Quarter: 2005Q3

REPORT INFORMATION
  Report Type: 
  Country: None (occurrence: None)
  Receive Date: 20050916
  Receipt Date: 20050907
  Transmission Date: 20060218
  Serious: Yes (Hospitalization, Other)
  Sender: FDA-Public Use
  Company Number: HQWYE164129AUG05

PATIENT
  Age: 41 Year
  Sex: Male
  Weight: 63.56 kg

DRUGS (15)
  1. RAPAMUNE [Suspect]
     Indication: PROPHYLAXIS AGAINST TRANSPLANT REJECTION
     Dosage: ORAL
     Route: 048
     Dates: end: 20050817
  2. ARAVA [Suspect]
     Dosage: 20 MG 1X PER 1 DAY
     Dates: end: 20050801
  3. PREDNISONE [Suspect]
     Indication: PROPHYLAXIS AGAINST TRANSPLANT REJECTION
     Dosage: 10 MG 1X PER 1 DAY, ORAL; 20 MG 1X PER 1 DAY, ORAL
     Route: 048
  4. PROGRAF [Suspect]
     Indication: PROPHYLAXIS AGAINST TRANSPLANT REJECTION
     Dosage: 3 MG 2X PER 2 DAY; 2.5 MG 2X PER 1 DAY
  5. ZENAPAX [Concomitant]
  6. NORVASC [Concomitant]
  7. LIPITOR [Concomitant]
  8. VASOTEC [Concomitant]
  9. NOVOLOG [Concomitant]
  10. ASPIRIN [Concomitant]
  11. ROCALTROL [Concomitant]
  12. LOPRESSOR [Concomitant]
  13. BACTRIM DS [Concomitant]
  14. BACTRIM DS [Concomitant]
  15. ARTANE [Concomitant]

REACTIONS (2)
  - BLOOD GLUCOSE INCREASED [None]
  - TRANSPLANT REJECTION [None]
